FAERS Safety Report 24267488 (Version 1)
Quarter: 2024Q3

REPORT INFORMATION
  Report Type: Spontaneous
  Country: US (occurrence: None)
  Receive Date: 20240829
  Receipt Date: 20240829
  Transmission Date: 20241016
  Serious: Yes (Disabling)
  Sender: Public
  Company Number: None

PATIENT
  Age: 77 Year
  Sex: Male
  Weight: 83.25 kg

DRUGS (1)
  1. REPATHA [Suspect]
     Active Substance: EVOLOCUMAB
     Indication: Cardiac disorder
     Route: 030
     Dates: start: 20240828

REACTIONS (5)
  - Oropharyngeal pain [None]
  - Headache [None]
  - Influenza [None]
  - Diarrhoea [None]
  - Post procedural complication [None]

NARRATIVE: CASE EVENT DATE: 20240828
